FAERS Safety Report 8907049 (Version 3)
Quarter: 2013Q1

REPORT INFORMATION
  Report Type: Spontaneous
  Country: US (occurrence: US)
  Receive Date: 20121114
  Receipt Date: 20130222
  Transmission Date: 20140127
  Serious: Yes (Other)
  Sender: FDA-Public Use
  Company Number: PHEH2012US022432

PATIENT
  Sex: Female

DRUGS (2)
  1. DIOVAN [Suspect]
  2. JANUVIA [Concomitant]

REACTIONS (3)
  - Cardiac failure [Unknown]
  - Myocardial infarction [Unknown]
  - Diabetes mellitus [Unknown]
